FAERS Safety Report 5288343-3 (Version None)
Quarter: 2007Q2

REPORT INFORMATION
  Report Type: 
  Country: None (occurrence: None)
  Receive Date: 20070405
  Receipt Date: 20070329
  Transmission Date: 20071010
  Serious: Yes (Hospitalization, Other)
  Sender: FDA-Public Use
  Company Number: 2006AP03531

PATIENT
  Age: 25004 Day
  Sex: Male
  Weight: 68 kg

DRUGS (9)
  1. CRESTOR [Suspect]
     Indication: HYPERCHOLESTEROLAEMIA
     Route: 048
     Dates: start: 20060121, end: 20060317
  2. CRESTOR [Suspect]
     Route: 048
     Dates: start: 20060318, end: 20060519
  3. CRESTOR [Suspect]
     Route: 048
     Dates: start: 20060520, end: 20060707
  4. CRESTOR [Suspect]
     Route: 048
     Dates: start: 20060708, end: 20060901
  5. BLOPRESS [Concomitant]
     Route: 048
  6. AMLODIN [Concomitant]
     Indication: HYPERTENSION
     Route: 048
     Dates: start: 20060121
  7. ASPIRIN [Concomitant]
     Indication: THROMBOSIS PROPHYLAXIS
     Route: 048
  8. TICLOPIDINE HCL [Concomitant]
     Indication: THROMBOSIS PROPHYLAXIS
     Route: 048
  9. TENORMIN [Concomitant]
     Indication: HYPERTENSION
     Route: 048
     Dates: end: 20060728

REACTIONS (2)
  - CHEST PAIN [None]
  - PROSTATE CANCER [None]
